FAERS Safety Report 9337146 (Version 1)
Quarter: 2013Q2

REPORT INFORMATION
  Report Type: Spontaneous
  Country: US (occurrence: US)
  Receive Date: 20130607
  Receipt Date: 20130607
  Transmission Date: 20140414
  Serious: Yes (Other)
  Sender: FDA-Public Use
  Company Number: US-JNJFOC-20130600176

PATIENT
  Sex: 0

DRUGS (2)
  1. RISPERDAL [Suspect]
     Indication: EXPOSURE DURING BREAST FEEDING
     Route: 063
  2. INVEGA SUSTENNA [Suspect]
     Indication: EXPOSURE DURING BREAST FEEDING
     Route: 063

REACTIONS (2)
  - Extrapyramidal disorder [Unknown]
  - Breast feeding [Unknown]
